FAERS Safety Report 19875490 (Version 3)
Quarter: 2021Q4

REPORT INFORMATION
  Report Type: Spontaneous
  Country: US (occurrence: US)
  Receive Date: 20210924
  Receipt Date: 20211114
  Transmission Date: 20220303
  Serious: Yes (Life-Threatening, Hospitalization, Other)
  Sender: FDA-Public Use
  Company Number: US-MLMSERVICE-20210908-3096431-1

PATIENT
  Age: 6 Year
  Sex: Male
  Weight: 27 kg

DRUGS (2)
  1. CETIRIZINE [Suspect]
     Active Substance: CETIRIZINE HYDROCHLORIDE
     Indication: Rhinitis allergic
     Dosage: 20 MILLIGRAM, ONCE A DAY(BETWEEN 15 AND 20 MG OF ORAL (SYRUP) CETIRIZINE FOR APPROXIMATELY 2 WEEKS )
     Route: 048
  2. CETIRIZINE [Suspect]
     Active Substance: CETIRIZINE HYDROCHLORIDE
     Dosage: 15 MILLIGRAM, ONCE A DAY(BETWEEN 15 AND 20 MG OF ORAL (SYRUP) CETIRIZINE FOR APPROXIMATELY 2 WEEKS )
     Route: 048

REACTIONS (4)
  - Toxicity to various agents [Recovering/Resolving]
  - Anticholinergic syndrome [Recovering/Resolving]
  - Accidental overdose [Recovering/Resolving]
  - Urinary incontinence [Recovering/Resolving]
